FAERS Safety Report 8736511 (Version 2)
Quarter: 2014Q1

REPORT INFORMATION
  Report Type: Report from Study
  Country: US (occurrence: US)
  Receive Date: 20120822
  Receipt Date: 20140320
  Transmission Date: 20141002
  Serious: Yes (Hospitalization, Other)
  Sender: FDA-Public Use
  Company Number: US-ROCHE-690792

PATIENT
  Age: 62 Year
  Sex: Female
  Weight: 105.7 kg

DRUGS (16)
  1. VEMURAFENIB [Suspect]
     Indication: METASTATIC MALIGNANT MELANOMA
     Dosage: PERMANENTLY DISCONTINUED.  LAST DOSE PRIOR TO SAE WAS GIVEN ON: 03/MAR/2010.
     Route: 048
     Dates: start: 20100216, end: 20100726
  2. ESZOPICLONE [Concomitant]
     Route: 065
  3. GABAPENTIN [Concomitant]
     Route: 065
  4. FLUOXETINE [Concomitant]
     Route: 065
  5. FUROSEMIDE [Concomitant]
     Route: 065
  6. FUROSEMIDE [Concomitant]
     Route: 065
  7. LEVOTHYROXINE [Concomitant]
     Route: 065
  8. OXYCODONE [Concomitant]
     Dosage: PATIENT RECEIVED 20 MG OXYCODONE IN SUSTAINED RELEASE FORM.
     Route: 065
  9. OXYCODONE [Concomitant]
     Route: 065
  10. SIMVASTATIN [Concomitant]
     Route: 065
  11. SPIRIVA [Concomitant]
     Route: 065
  12. GLIPIZIDE [Concomitant]
     Route: 065
  13. INSULIN LISPRO [Concomitant]
     Dosage: TDD: SCALED
     Route: 065
  14. JANUVIA [Concomitant]
     Route: 065
  15. LEVEMIR [Concomitant]
     Dosage: TDD: 70 UNITS
     Route: 065
  16. ESCITALOPRAM [Concomitant]
     Route: 065

REACTIONS (7)
  - Cellulitis [Recovered/Resolved]
  - Squamous cell carcinoma of skin [Recovered/Resolved]
  - Squamous cell carcinoma of skin [Recovered/Resolved]
  - Squamous cell carcinoma of skin [Recovered/Resolved]
  - Squamous cell carcinoma of skin [Recovered/Resolved]
  - Squamous cell carcinoma of skin [Recovered/Resolved]
  - Squamous cell carcinoma of skin [Recovered/Resolved]
